FAERS Safety Report 16461374 (Version 1)
Quarter: 2019Q2

REPORT INFORMATION
  Report Type: Report from Study
  Country: FR (occurrence: FR)
  Receive Date: 20190621
  Receipt Date: 20190621
  Transmission Date: 20190711
  Serious: Yes (Hospitalization, Other)
  Sender: FDA-Public Use
  Company Number: FR-ROCHE-2338395

PATIENT
  Age: 74 Year
  Sex: Female

DRUGS (4)
  1. CARBOPLATIN. [Suspect]
     Active Substance: CARBOPLATIN
     Indication: OVARIAN CANCER
     Dosage: ON 13/09/2018, SHE RECEIVED LAST DOSE OF CARBOPLATIN PRIOR TO AE.
     Route: 042
     Dates: start: 20180426, end: 20180913
  2. ATEZOLIZUMAB. [Suspect]
     Active Substance: ATEZOLIZUMAB
     Indication: OVARIAN CANCER
     Dosage: ON 27/SEP/2018, SHE RECEIVED LAST DOSE OF ATEZOLIZUMAB PRIOR TO AE.
     Route: 042
     Dates: start: 20180426, end: 20180927
  3. CAELYX [Suspect]
     Active Substance: DOXORUBICIN HYDROCHLORIDE
     Indication: OVARIAN CANCER
     Dosage: ON 13/09/2018, SHE RECEIVED LAST DOSE OF PLD PRIOR TO AE.
     Route: 042
     Dates: start: 20180426, end: 20180913
  4. BEVACIZUMAB. [Suspect]
     Active Substance: BEVACIZUMAB
     Indication: OVARIAN CANCER
     Dosage: ON 27/SEP/2018, SHE RECEIVED LAST DOSE OF BEVACIZUMAB PRIOR TO AE.
     Route: 042
     Dates: start: 20180426, end: 20180927

REACTIONS (4)
  - Hypothyroidism [Recovered/Resolved]
  - Hypertension [Recovered/Resolved]
  - Thrombotic microangiopathy [Recovered/Resolved]
  - Pericardial effusion [Not Recovered/Not Resolved]

NARRATIVE: CASE EVENT DATE: 20181008
